FAERS Safety Report 19403753 (Version 2)
Quarter: 2021Q2

REPORT INFORMATION
  Report Type: Spontaneous
  Country: US (occurrence: US)
  Receive Date: 20210610
  Receipt Date: 20210622
  Transmission Date: 20210717
  Serious: Yes (Life-Threatening, Hospitalization, Other)
  Sender: FDA-Public Use
  Company Number: US-BAXTER-2021BAX014738

PATIENT
  Age: 15 Year
  Sex: Male

DRUGS (3)
  1. BUPIVACAINE HYDROCHLORIDE IN 8.25% DEXTROSE INJECTION USP [Suspect]
     Active Substance: BUPIVACAINE HYDROCHLORIDE
     Dosage: INTRAORAL (LIPOSOMAL)
     Route: 048
  2. EPINEPHRINE. [Concomitant]
     Active Substance: EPINEPHRINE
     Indication: LOCAL ANAESTHESIA
     Route: 065
  3. BUPIVACAINE HYDROCHLORIDE IN 8.25% DEXTROSE INJECTION USP [Suspect]
     Active Substance: BUPIVACAINE HYDROCHLORIDE
     Indication: LOCAL ANAESTHESIA
     Route: 065

REACTIONS (7)
  - Cardiac arrest [Unknown]
  - Mydriasis [Unknown]
  - Unresponsive to stimuli [Unknown]
  - Sinus arrest [Unknown]
  - Sinus bradycardia [Unknown]
  - Hypertension [Unknown]
  - Local anaesthetic systemic toxicity [Unknown]
